FAERS Safety Report 5105365-3 (Version None)
Quarter: 2006Q3

REPORT INFORMATION
  Report Type: 
  Country: None (occurrence: None)
  Receive Date: 20060731
  Receipt Date: 20060327
  Transmission Date: 20061208
  Serious: Yes (Other)
  Sender: FDA-Public Use
  Company Number: US-JNJFOC-20060307092

PATIENT
  Sex: Male

DRUGS (8)
  1. RISPERDAL [Suspect]
     Indication: ATTENTION DEFICIT/HYPERACTIVITY DISORDER
     Dosage: 1.5 MG, IN 1 DAY, ORAL
     Route: 048
  2. RISPERDAL [Suspect]
     Indication: OBSESSIVE-COMPULSIVE DISORDER
     Dosage: 1.5 MG, IN 1 DAY, ORAL
     Route: 048
  3. RISPERDAL [Suspect]
     Indication: TOURETTE'S DISORDER
     Dosage: 1.5 MG, IN 1 DAY, ORAL
     Route: 048
  4. ATOMOXETINE HYDROCHLORIDE (ALL OTHER THERAPEUTIC PRODUCTS) TABLETS [Suspect]
     Indication: ATTENTION DEFICIT/HYPERACTIVITY DISORDER
     Dosage: 40 MG, 1 IN 1 DAY, ORAL
     Route: 048
  5. ATOMOXETINE HYDROCHLORIDE (ALL OTHER THERAPEUTIC PRODUCTS) TABLETS [Suspect]
     Indication: OBSESSIVE-COMPULSIVE DISORDER
     Dosage: 40 MG, 1 IN 1 DAY, ORAL
     Route: 048
  6. ATOMOXETINE HYDROCHLORIDE (ALL OTHER THERAPEUTIC PRODUCTS) TABLETS [Suspect]
     Indication: TOURETTE'S DISORDER
     Dosage: 40 MG, 1 IN 1 DAY, ORAL
     Route: 048
  7. ALLERGY MEDICINE (ALLERGY MEDICATION) [Suspect]
     Indication: DRUG USE FOR UNKNOWN INDICATION
  8. INHALER (ANTI-ASHTHMATICS) [Suspect]
     Indication: DRUG USE FOR UNKNOWN INDICATION

REACTIONS (3)
  - GROWTH RETARDATION [None]
  - INCORRECT DOSE ADMINISTERED [None]
  - WEIGHT INCREASED [None]
